FAERS Safety Report 8410760 (Version 4)
Quarter: 2013Q4

REPORT INFORMATION
  Report Type: Spontaneous
  Country: US (occurrence: US)
  Receive Date: 20120217
  Receipt Date: 20131216
  Transmission Date: 20140711
  Serious: Yes (Hospitalization)
  Sender: FDA-Public Use
  Company Number: US-BAYER-2012-015872

PATIENT
  Age: 18 Year
  Sex: Female
  Weight: 61.22 kg

DRUGS (7)
  1. OCELLA [Suspect]
     Indication: CONTRACEPTION
     Dosage: UNK
     Dates: start: 200902, end: 201002
  2. ALBUTEROL [Concomitant]
     Dosage: UNK
     Route: 045
     Dates: start: 20100818
  3. SUDAFED [Concomitant]
     Dosage: UNK
     Dates: start: 20100818
  4. IBUPROFEN [Concomitant]
     Dosage: UNK
     Dates: start: 20100818
  5. ZOLOFT [Concomitant]
     Indication: ANXIETY
     Dosage: UNK
     Route: 048
     Dates: start: 20100818
  6. NYQUIL [Concomitant]
     Dosage: UNK
     Route: 048
     Dates: start: 20100818
  7. AUGMENTIN [Concomitant]
     Dosage: 875 MG, UNK
     Route: 048
     Dates: start: 20100818

REACTIONS (12)
  - Cholecystitis chronic [None]
  - Cholelithiasis [None]
  - Abdominal pain [None]
  - Vomiting [None]
  - Procedural nausea [None]
  - Diarrhoea [None]
  - Gastrooesophageal reflux disease [None]
  - Procedural pain [None]
  - Chest pain [None]
  - Malaise [None]
  - Emotional distress [None]
  - Frustration [None]
